FAERS Safety Report 9162402 (Version 2)
Quarter: 2013Q1

REPORT INFORMATION
  Report Type: Spontaneous
  Country: GB (occurrence: GB)
  Receive Date: 20130314
  Receipt Date: 20130328
  Transmission Date: 20140127
  Serious: Yes (Other)
  Sender: FDA-Public Use
  Company Number: GB-ASTELLAS-2013EU001910

PATIENT
  Age: 48 Year
  Sex: Male

DRUGS (2)
  1. VESICARE [Suspect]
     Indication: HYPERTONIC BLADDER
     Dosage: 5 MG, UID/QD
     Route: 048
     Dates: start: 20030215
  2. CETRIZINE [Suspect]
     Indication: URTICARIA
     Dosage: 10 MG, UID/QD
     Route: 048
     Dates: start: 20030226

REACTIONS (1)
  - Herpes zoster [Recovered/Resolved]
